FAERS Safety Report 12140992 (Version 2)
Quarter: 2016Q4

REPORT INFORMATION
  Report Type: Spontaneous
  Country: US (occurrence: US)
  Receive Date: 20160303
  Receipt Date: 20161215
  Transmission Date: 20170207
  Serious: Yes (Other)
  Sender: FDA-Public Use
  Company Number: US-ELI_LILLY_AND_COMPANY-US201602009360

PATIENT
  Sex: Female

DRUGS (2)
  1. CYMBALTA [Suspect]
     Active Substance: DULOXETINE HYDROCHLORIDE
     Indication: PAIN
     Dosage: 30 MG, QD
     Route: 048
  2. CYMBALTA [Suspect]
     Active Substance: DULOXETINE HYDROCHLORIDE
     Indication: DEPRESSION
     Dosage: 20 MG, OTHER
     Route: 048
     Dates: start: 201304, end: 20130515

REACTIONS (19)
  - Withdrawal syndrome [Unknown]
  - Vertigo [Unknown]
  - Amnesia [Unknown]
  - Insomnia [Unknown]
  - Fatigue [Unknown]
  - Vomiting [Unknown]
  - Feeling abnormal [Unknown]
  - Tremor [Unknown]
  - Confusional state [Unknown]
  - Blepharospasm [Unknown]
  - Anxiety [Unknown]
  - Dehydration [Unknown]
  - Paraesthesia [Unknown]
  - Hyperhidrosis [Unknown]
  - Suicidal ideation [Unknown]
  - Dizziness [Unknown]
  - Nausea [Unknown]
  - Headache [Unknown]
  - Lethargy [Unknown]
